FAERS Safety Report 13297788 (Version 4)
Quarter: 2017Q3

REPORT INFORMATION
  Report Type: Spontaneous
  Country: FR (occurrence: FR)
  Receive Date: 20170306
  Receipt Date: 20170714
  Transmission Date: 20171127
  Serious: Yes (Other)
  Sender: FDA-Public Use
  Company Number: FR-AUROBINDO-AUR-APL-2017-30344

PATIENT
  Age: 66 Year
  Sex: Female

DRUGS (2)
  1. CEFIXIME 200MG [Suspect]
     Active Substance: CEFIXIME
     Indication: BRONCHITIS
     Dosage: 200 MG, TWO TIMES A DAY (DURING ONE WEEK)
     Route: 065
  2. AZATHIOPRINE. [Concomitant]
     Active Substance: AZATHIOPRINE
     Indication: PRODUCT USED FOR UNKNOWN INDICATION
     Dosage: 50 MG, TREATED FOR YEARS
     Route: 065

REACTIONS (3)
  - Oromandibular dystonia [Recovered/Resolved]
  - Dysarthria [Recovered/Resolved]
  - Facial spasm [Recovered/Resolved]
